FAERS Safety Report 9041464 (Version 1)
Quarter: 2013Q1

REPORT INFORMATION
  Report Type: Spontaneous
  Country: US (occurrence: US)
  Receive Date: 20130129
  Receipt Date: 20130129
  Transmission Date: 20140127
  Serious: No
  Sender: FDA-Public Use
  Company Number: US-ABBOTT-12P-163-0904264-00

PATIENT
  Age: 63 None
  Sex: Female

DRUGS (4)
  1. HUMIRA 40 MG/0.8 ML PEN [Suspect]
     Indication: RHEUMATOID ARTHRITIS
     Route: 058
     Dates: start: 2010
  2. HYDROXYUREA [Concomitant]
     Indication: PRODUCT USED FOR UNKNOWN INDICATION
  3. ACTONEL [Concomitant]
     Indication: BONE DISORDER
  4. CALCIUM +D [Concomitant]
     Indication: MINERAL SUPPLEMENTATION

REACTIONS (13)
  - Nasal congestion [Recovering/Resolving]
  - Sinus headache [Recovering/Resolving]
  - Sinus headache [Recovering/Resolving]
  - Dyspnoea [Recovering/Resolving]
  - Headache [Recovering/Resolving]
  - Pyrexia [Recovering/Resolving]
  - Chills [Recovering/Resolving]
  - Cough [Recovering/Resolving]
  - Malaise [Recovering/Resolving]
  - Rhinitis allergic [Unknown]
  - Sinusitis [Unknown]
  - Bronchitis [Unknown]
  - Laryngitis [Unknown]
